FAERS Safety Report 11583273 (Version 6)
Quarter: 2017Q3

REPORT INFORMATION
  Report Type: Report from Study
  Country: DE (occurrence: DE)
  Receive Date: 20151001
  Receipt Date: 20170724
  Transmission Date: 20171127
  Serious: Yes (Hospitalization)
  Sender: FDA-Public Use
  Company Number: DE-AMGEN-DEUCT2015100707

PATIENT
  Age: 51 Year
  Sex: Male
  Weight: 83 kg

DRUGS (6)
  1. PANITUMUMAB [Suspect]
     Active Substance: PANITUMUMAB
     Indication: COLORECTAL CANCER METASTATIC
     Dosage: 400 MG, UNK
     Route: 042
     Dates: start: 20150429, end: 20150922
  2. FOLINIC ACID [Suspect]
     Active Substance: LEUCOVORIN
     Indication: COLORECTAL CANCER METASTATIC
     Dosage: 300 MG/M2, UNK
     Route: 042
     Dates: start: 20150429
  3. ENTOCORT [Concomitant]
     Active Substance: BUDESONIDE
     Indication: ENTEROCOLITIS HAEMORRHAGIC
     Dosage: 9 MG, QD
     Route: 048
     Dates: start: 20150925
  4. OXALIPLATIN. [Suspect]
     Active Substance: OXALIPLATIN
     Indication: COLORECTAL CANCER METASTATIC
     Dosage: 64 MG/M2, UNK
     Route: 042
     Dates: start: 20150429
  5. 5-FU [Suspect]
     Active Substance: FLUOROURACIL
     Indication: COLORECTAL CANCER METASTATIC
     Dosage: 1800 MG/M2, UNK
     Route: 042
     Dates: start: 20150429
  6. PANTOPRAZOL [Concomitant]
     Active Substance: PANTOPRAZOLE SODIUM
     Indication: ABDOMINAL DISCOMFORT
     Dosage: 40 MG, QD
     Route: 048
     Dates: start: 20141206

REACTIONS (4)
  - Fatigue [Recovering/Resolving]
  - Constipation [Recovering/Resolving]
  - Oedema peripheral [Recovering/Resolving]
  - Condition aggravated [Recovering/Resolving]

NARRATIVE: CASE EVENT DATE: 20150925
